FAERS Safety Report 23815660 (Version 3)
Quarter: 2024Q2

REPORT INFORMATION
  Report Type: Report from Study
  Country: KR (occurrence: KR)
  Receive Date: 20240503
  Receipt Date: 20240517
  Transmission Date: 20240716
  Serious: Yes (Hospitalization)
  Sender: FDA-Public Use
  Company Number: KR-MYLANLABS-2024M1037719

PATIENT
  Age: 67 Year
  Sex: Male
  Weight: 66.2 kg

DRUGS (5)
  1. PRETOMANID [Suspect]
     Active Substance: PRETOMANID
     Indication: Tuberculosis
     Dosage: 200 MILLIGRAM, QD
     Route: 048
     Dates: start: 20231123
  2. GLIMEPIRIDE\METFORMIN [Concomitant]
     Active Substance: GLIMEPIRIDE\METFORMIN
     Indication: Colorectal cancer
     Dosage: 500 MILLIGRAM, QD
     Route: 048
     Dates: start: 20130101
  3. ATORVASTATIN CALCIUM\GLIMEPIRIDE\METFORMIN HYDROCHLORIDE [Concomitant]
     Active Substance: ATORVASTATIN CALCIUM\GLIMEPIRIDE\METFORMIN HYDROCHLORIDE
     Indication: Colorectal cancer
     Dosage: 50 MILLIGRAM, QD
     Route: 048
     Dates: start: 20130101
  4. TADALAFIL\TAMSULOSIN HYDROCHLORIDE [Concomitant]
     Active Substance: TADALAFIL\TAMSULOSIN HYDROCHLORIDE
     Indication: Colorectal cancer
     Dosage: 0.4 MILLIGRAM, QD
     Route: 048
     Dates: start: 20160101
  5. ENTECAVIR [Concomitant]
     Active Substance: ENTECAVIR
     Indication: Colorectal cancer
     Dosage: 0.5 MILLIGRAM, QD
     Route: 048
     Dates: start: 20160101

REACTIONS (3)
  - Metastasis [Recovering/Resolving]
  - Hypoaesthesia [Unknown]
  - Productive cough [Unknown]

NARRATIVE: CASE EVENT DATE: 20240421
